FAERS Safety Report 23606653 (Version 2)
Quarter: 2025Q1

REPORT INFORMATION
  Report Type: Spontaneous
  Country: US (occurrence: US)
  Receive Date: 20240307
  Receipt Date: 20250116
  Transmission Date: 20250408
  Serious: Yes (Death, Other)
  Sender: MYLAN
  Company Number: US-MYLANLABS-2024M1018808

PATIENT
  Age: 65 Year
  Sex: Female
  Weight: 68.94 kg

DRUGS (1)
  1. HYDROCHLOROTHIAZIDE\VALSARTAN [Suspect]
     Active Substance: HYDROCHLOROTHIAZIDE\VALSARTAN
     Indication: Hypertension
     Route: 065
     Dates: start: 20130414, end: 20170813

REACTIONS (2)
  - Hepatic cancer [Fatal]
  - Cholangiocarcinoma [Fatal]

NARRATIVE: CASE EVENT DATE: 20220304
